FAERS Safety Report 8881646 (Version 2)
Quarter: 2012Q4

REPORT INFORMATION
  Report Type: 
  Country: US (occurrence: US)
  Receive Date: 20121102
  Receipt Date: 20121227
  Transmission Date: 20130627
  Serious: Yes (Hospitalization, Other)
  Sender: FDA-Public Use
  Company Number: US-JNJFOC-20121017155

PATIENT
  Sex: Female
  Weight: 61.24 kg

DRUGS (8)
  1. FENTANYL TRANSDERMAL SYSTEM [Suspect]
     Indication: SYSTEMIC LUPUS ERYTHEMATOSUS
     Route: 062
     Dates: end: 2009
  2. DURAGESIC [Suspect]
     Indication: SYSTEMIC LUPUS ERYTHEMATOSUS
     Route: 062
     Dates: start: 2009
  3. DURAGESIC [Suspect]
     Indication: GASTRIC CANCER
     Route: 062
     Dates: start: 2009
  4. DURAGESIC [Suspect]
     Indication: SYSTEMIC LUPUS ERYTHEMATOSUS
     Route: 062
     Dates: end: 2009
  5. FENTANYL [Suspect]
     Indication: BREAKTHROUGH PAIN
     Route: 062
     Dates: start: 2005, end: 2009
  6. FENTORA [Suspect]
     Indication: PRODUCT USED FOR UNKNOWN INDICATION
     Route: 065
     Dates: start: 2009
  7. GENERIC SOMA [Concomitant]
     Indication: MUSCLE RELAXANT THERAPY
     Route: 065
  8. ALPRAZOLAM [Concomitant]
     Indication: SLEEP DISORDER
     Route: 048

REACTIONS (11)
  - Gastric cancer [Recovered/Resolved]
  - Gastric operation [Recovered/Resolved]
  - Adverse event [Recovered/Resolved]
  - Pain [Unknown]
  - Drug dose omission [Not Recovered/Not Resolved]
  - Product quality issue [Unknown]
  - Inappropriate schedule of drug administration [Recovered/Resolved]
  - Wrong technique in drug usage process [Unknown]
  - Product quality issue [Unknown]
  - Product quality issue [Unknown]
  - Product adhesion issue [Unknown]
